FAERS Safety Report 7916542-8 (Version None)
Quarter: 2011Q4

REPORT INFORMATION
  Report Type: 
  Country: None (occurrence: None)
  Receive Date: 20111116
  Receipt Date: 20111107
  Transmission Date: 20120403
  Serious: Yes (Hospitalization)
  Sender: FDA-Public Use
  Company Number: FR-JNJFOC-20111104323

PATIENT
  Sex: Male

DRUGS (6)
  1. FENOFIBRATE [Concomitant]
     Route: 065
  2. EZETIMIBE [Concomitant]
     Route: 065
  3. ALL OTHER THERAPEUTIC PRODUCT [Concomitant]
     Route: 065
  4. CIALIS [Concomitant]
     Route: 065
  5. LASIX [Concomitant]
     Route: 065
  6. REOPRO [Suspect]
     Indication: ILL-DEFINED DISORDER
     Route: 042
     Dates: start: 20110925, end: 20110926

REACTIONS (2)
  - CYTOLYTIC HEPATITIS [None]
  - PULMONARY ALVEOLAR HAEMORRHAGE [None]
